FAERS Safety Report 14972185 (Version 1)
Quarter: 2018Q2

REPORT INFORMATION
  Report Type: Spontaneous
  Country: US (occurrence: US)
  Receive Date: 20180605
  Receipt Date: 20180605
  Transmission Date: 20180711
  Serious: No
  Sender: FDA-Public Use
  Company Number: US-FOUNDATIONCONSUMERHC-2018-US-003355

PATIENT
  Age: 35 Year
  Sex: Female
  Weight: 85.73 kg

DRUGS (2)
  1. ALBUTEROL NEBULIZERS [Concomitant]
     Active Substance: ALBUTEROL
     Dosage: USED AS NEEDED WHEN SICK
     Route: 055
  2. PLAN B ONE-STEP [Suspect]
     Active Substance: LEVONORGESTREL
     Dosage: 1.5MG
     Route: 048
     Dates: start: 20180213, end: 20180213

REACTIONS (1)
  - Vaginal haemorrhage [Not Recovered/Not Resolved]

NARRATIVE: CASE EVENT DATE: 20180221
